FAERS Safety Report 22044768 (Version 1)
Quarter: 2023Q1

REPORT INFORMATION
  Report Type: Spontaneous
  Country: US (occurrence: None)
  Receive Date: 20230227
  Receipt Date: 20230227
  Transmission Date: 20230418
  Serious: No
  Sender: FDA-Public Use
  Company Number: None

PATIENT

DRUGS (2)
  1. NOVOLOG [Suspect]
     Active Substance: INSULIN ASPART
  2. LANTUS [Suspect]
     Active Substance: INSULIN GLARGINE

REACTIONS (5)
  - Transcription medication error [None]
  - Drug monitoring procedure not performed [None]
  - Intercepted product dispensing error [None]
  - Wrong product administered [None]
  - Wrong dosage form [None]
